FAERS Safety Report 10903129 (Version 8)
Quarter: 2017Q4

REPORT INFORMATION
  Report Type: Report from Study
  Country: KR (occurrence: KR)
  Receive Date: 20150311
  Receipt Date: 20171229
  Transmission Date: 20180320
  Serious: Yes (Hospitalization)
  Sender: FDA-Public Use
  Company Number: KR-ROCHE-1548544

PATIENT
  Age: 50 Year
  Sex: Female
  Weight: 52.9 kg

DRUGS (24)
  1. SODIUM HYALURONATE [Concomitant]
     Active Substance: HYALURONATE SODIUM
     Route: 065
     Dates: start: 20150311
  2. UDCA [Concomitant]
     Active Substance: URSODIOL
     Route: 065
     Dates: start: 20150217, end: 20150225
  3. FAMOTIDINE. [Concomitant]
     Active Substance: FAMOTIDINE
     Route: 065
     Dates: start: 20150513, end: 20150519
  4. TRASTUZUMAB EMTANSINE [Suspect]
     Active Substance: ADO-TRASTUZUMAB EMTANSINE
     Indication: HER-2 POSITIVE BREAST CANCER
     Dosage: START TIME OF INFUSION: 15:05, STOP TIME OF INFUSION: 16:35. INTENDED DOSE 3.6 MG/KG (190 MG)?LAST D
     Route: 042
     Dates: start: 20150130
  5. PERTUZUMAB. [Suspect]
     Active Substance: PERTUZUMAB
     Indication: HER-2 POSITIVE BREAST CANCER
     Dosage: START TIME OF INFUSION: 13:05 STOP TIME OF INFUSION: 14:05?LOADING DOSE
     Route: 042
     Dates: start: 20150130
  6. LEVOFLOXACIN. [Concomitant]
     Active Substance: LEVOFLOXACIN
     Route: 065
     Dates: start: 20150513
  7. FLUMETHORONE [Concomitant]
     Dosage: 1 DROP
     Route: 065
     Dates: start: 20150311
  8. CODAEWON FORTE [Concomitant]
     Route: 065
     Dates: start: 20150513, end: 20150519
  9. MAGNESIUM OXIDE. [Concomitant]
     Active Substance: MAGNESIUM OXIDE
     Route: 065
     Dates: start: 20150225, end: 20150407
  10. SILYMARIN [Concomitant]
     Active Substance: DIETARY SUPPLEMENT\HERBALS\MILK THISTLE
     Route: 065
     Dates: start: 20150217, end: 20150225
  11. PIROXICAM. [Concomitant]
     Active Substance: PIROXICAM
     Dosage: 1 PATCH
     Route: 065
     Dates: start: 20150508, end: 20150514
  12. ACETAMINOPHEN. [Concomitant]
     Active Substance: ACETAMINOPHEN
     Route: 065
     Dates: start: 20150130, end: 20150407
  13. SODIUM HYALURONATE [Concomitant]
     Active Substance: HYALURONATE SODIUM
     Route: 065
     Dates: start: 20150209, end: 20150225
  14. SOLCOSERYL [Concomitant]
     Active Substance: SOLCOSERYL
     Dosage: CONCENTRATE
     Route: 065
     Dates: start: 20150209, end: 20150225
  15. METHYLPREDNISOLONE. [Concomitant]
     Active Substance: METHYLPREDNISOLONE
     Route: 065
     Dates: start: 20150513
  16. LEVOFLOXACIN. [Concomitant]
     Active Substance: LEVOFLOXACIN
     Route: 065
     Dates: start: 20150209, end: 20150225
  17. CHLORPHENIRAMINE MALEATE. [Concomitant]
     Active Substance: CHLORPHENIRAMINE MALEATE
     Indication: PREMEDICATION
     Route: 065
     Dates: start: 20150130, end: 20150429
  18. ACECLOFENAC [Concomitant]
     Active Substance: ACECLOFENAC
     Route: 065
     Dates: start: 20150508, end: 20150514
  19. FENTANYL. [Concomitant]
     Active Substance: FENTANYL
     Route: 065
     Dates: start: 20150514, end: 20150517
  20. BROMHEXINE [Concomitant]
     Active Substance: BROMHEXINE
     Route: 065
     Dates: start: 20150518
  21. PERTUZUMAB. [Suspect]
     Active Substance: PERTUZUMAB
     Dosage: MAINTENANCE DOSE?LAST DOSE PRIOR TO SAE: 25/FEB/2015, INFUSION START TIME: 14:20,
     Route: 042
     Dates: start: 20150225
  22. METHYLPREDNISOLONE. [Concomitant]
     Active Substance: METHYLPREDNISOLONE
     Route: 065
     Dates: start: 20150313
  23. FAMOTIDINE. [Concomitant]
     Active Substance: FAMOTIDINE
     Route: 065
     Dates: start: 20150302, end: 20150302
  24. BENZYDAMINE [Concomitant]
     Active Substance: BENZYDAMINE
     Route: 065
     Dates: start: 20150311

REACTIONS (1)
  - Gastritis [Not Recovered/Not Resolved]

NARRATIVE: CASE EVENT DATE: 20150302
